FAERS Safety Report 9462907 (Version 1)
Quarter: 2013Q3

REPORT INFORMATION
  Report Type: Spontaneous
  Country: IT (occurrence: None)
  Receive Date: 20130814
  Receipt Date: 20130814
  Transmission Date: 20140515
  Serious: Yes (Hospitalization)
  Sender: FDA-Public Use
  Company Number: FK201303274

PATIENT
  Age: 77 Year
  Sex: Male

DRUGS (4)
  1. IRINOTECAN (MANUFACTURER UNKNOWN) (IRINOTECAN) (IRINOTECAN) [Suspect]
     Indication: COLON CANCER
     Dosage: 290 MG, CYCLICAL, INTRAVENOUS  (NOT OTHERWISE SPECIFIED)
     Route: 042
     Dates: start: 20130404, end: 20130618
  2. FLUOROURACIL (FLUOROURACIL) (FLUOROURACIL) [Suspect]
     Indication: COLON CANCER
     Dosage: 2440 MG, CYCLICAL, INTRAVENOUS  (NOT OTHERWISE SPECIFIED)
     Route: 042
     Dates: start: 20130404, end: 20130618
  3. TIKLID (TICLOPIDINE HYDROCHLORIDE) [Concomitant]
  4. OMNIC (TAMSULOSIN HYDROCHLORIDE) [Concomitant]

REACTIONS (1)
  - Peripheral motor neuropathy [None]
